FAERS Safety Report 5031110-6 (Version None)
Quarter: 2006Q2

REPORT INFORMATION
  Report Type: 
  Country: None (occurrence: None)
  Receive Date: 20060619
  Receipt Date: 20060619
  Transmission Date: 20061013
  Serious: No
  Sender: FDA-Public Use
  Company Number: None

PATIENT
  Sex: Female
  Weight: 90.7194 kg

DRUGS (1)
  1. MICONAZOLE 3 [Suspect]
     Indication: FUNGAL INFECTION
     Dosage: 200 MG 1 QID VAG
     Route: 067
     Dates: start: 20060618, end: 20060618

REACTIONS (2)
  - BURNING SENSATION [None]
  - PRURITUS [None]
